FAERS Safety Report 11211183 (Version 3)
Quarter: 2015Q3

REPORT INFORMATION
  Report Type: Spontaneous
  Country: JP (occurrence: JP)
  Receive Date: 20150623
  Receipt Date: 20150825
  Transmission Date: 20151125
  Serious: Yes (Other)
  Sender: FDA-Public Use
  Company Number: JP-PFIZER INC-2015202248

PATIENT
  Sex: Female

DRUGS (4)
  1. LUMIGAN [Suspect]
     Active Substance: BIMATOPROST
     Indication: GLAUCOMA
     Dosage: UNK
     Route: 047
  2. XALATAN [Suspect]
     Active Substance: LATANOPROST
     Dosage: UNK, 1X/DAY
     Route: 047
     Dates: start: 201506
  3. XALATAN [Suspect]
     Active Substance: LATANOPROST
     Indication: GLAUCOMA
     Dosage: UNK, 1X/DAY
     Route: 047
  4. LUMIGAN [Suspect]
     Active Substance: BIMATOPROST
     Dosage: UNK

REACTIONS (4)
  - Lid sulcus deepened [Not Recovered/Not Resolved]
  - Skin discolouration [Not Recovered/Not Resolved]
  - Growth of eyelashes [Unknown]
  - Cataract [Not Recovered/Not Resolved]
